FAERS Safety Report 14658421 (Version 2)
Quarter: 2018Q2

REPORT INFORMATION
  Report Type: Spontaneous
  Country: US (occurrence: US)
  Receive Date: 20180320
  Receipt Date: 20180417
  Transmission Date: 20180711
  Serious: No
  Sender: FDA-Public Use
  Company Number: US-PFIZER INC-2018110363

PATIENT
  Age: 8 Decade
  Sex: Female

DRUGS (5)
  1. BOSULIF [Suspect]
     Active Substance: BOSUTINIB MONOHYDRATE
     Dosage: UNK
  2. BOSULIF [Suspect]
     Active Substance: BOSUTINIB MONOHYDRATE
     Dosage: 300 MG, UNK
  3. BOSULIF [Suspect]
     Active Substance: BOSUTINIB MONOHYDRATE
     Dosage: 500 MG, UNK
  4. VITAMIN C [Suspect]
     Active Substance: ASCORBIC ACID
     Dosage: UNK
  5. BOSULIF [Suspect]
     Active Substance: BOSUTINIB MONOHYDRATE
     Dosage: 100 MG, UNK

REACTIONS (6)
  - Nausea [Not Recovered/Not Resolved]
  - Diarrhoea [Recovered/Resolved]
  - White blood cell count decreased [Unknown]
  - Abdominal pain [Unknown]
  - Abdominal discomfort [Unknown]
  - Abdominal pain upper [Not Recovered/Not Resolved]
